FAERS Safety Report 16756934 (Version 3)
Quarter: 2020Q4

REPORT INFORMATION
  Report Type: Report from Study
  Country: DE (occurrence: DE)
  Receive Date: 20190829
  Receipt Date: 20201020
  Transmission Date: 20210113
  Serious: Yes (Hospitalization)
  Sender: FDA-Public Use
  Company Number: DE-JNJFOC-20190832562

PATIENT
  Age: 67 Year
  Sex: Female
  Weight: 69 kg

DRUGS (13)
  1. TORASEMID [Concomitant]
     Active Substance: TORSEMIDE
     Dosage: 10 MG, QD
     Dates: start: 20120203
  2. RANEXA [Concomitant]
     Active Substance: RANOLAZINE
     Dosage: 375 MG, QD
     Dates: start: 20120117
  3. CLOPIDOGREL [Concomitant]
     Active Substance: CLOPIDOGREL BISULFATE
     Dates: start: 20190807
  4. ATORVASTATIN [Concomitant]
     Active Substance: ATORVASTATIN
     Dosage: 10 MG, QD
     Dates: start: 20170711
  5. RIVAROXABAN [Suspect]
     Active Substance: RIVAROXABAN
     Indication: CORONARY ARTERY DISEASE
     Route: 048
     Dates: start: 20190215, end: 20190807
  6. ACETYLSALICYLIC ACID [Suspect]
     Active Substance: ASPIRIN
     Indication: CORONARY ARTERY DISEASE
     Route: 065
     Dates: start: 20190215
  7. CLOPIDOGREL [Concomitant]
     Active Substance: CLOPIDOGREL BISULFATE
     Dates: start: 20190627
  8. ACETYLSALICYLIC ACID [Suspect]
     Active Substance: ASPIRIN
     Indication: PERIPHERAL ARTERIAL OCCLUSIVE DISEASE
  9. EVOLOCUMAB [Concomitant]
     Active Substance: EVOLOCUMAB
     Dosage: 140 MG
     Dates: start: 20170711
  10. BISOPROLOL [Concomitant]
     Active Substance: BISOPROLOL
     Dosage: 2.5 MG, BID
     Dates: start: 20090212
  11. METFORMIN [Concomitant]
     Active Substance: METFORMIN HYDROCHLORIDE
     Dosage: 1000 MG, BID
     Dates: start: 20131216
  12. RIVAROXABAN [Suspect]
     Active Substance: RIVAROXABAN
     Indication: PERIPHERAL ARTERIAL OCCLUSIVE DISEASE
  13. CANDESARTAN. [Concomitant]
     Active Substance: CANDESARTAN
     Dosage: 8 MG, QD
     Dates: start: 20170621

REACTIONS (2)
  - Peripheral artery stenosis [Recovered/Resolved]
  - Peripheral artery stenosis [Recovered/Resolved]

NARRATIVE: CASE EVENT DATE: 20190701
